FAERS Safety Report 21604097 (Version 3)
Quarter: 2023Q2

REPORT INFORMATION
  Report Type: Spontaneous
  Country: JP (occurrence: JP)
  Receive Date: 20221116
  Receipt Date: 20230619
  Transmission Date: 20230721
  Serious: Yes (Hospitalization, Other)
  Sender: FDA-Public Use
  Company Number: JP-DSJP-DSJ-2022-138184

PATIENT
  Age: 71 Year
  Sex: Male
  Weight: 54.3 kg

DRUGS (4)
  1. ENHERTU [Suspect]
     Active Substance: FAM-TRASTUZUMAB DERUXTECAN-NXKI
     Indication: Gastric cancer recurrent
     Dosage: 6.4 MG/KG, ONCE EVERY 3 WK
     Route: 041
     Dates: start: 20220802, end: 20220802
  2. ENHERTU [Suspect]
     Active Substance: FAM-TRASTUZUMAB DERUXTECAN-NXKI
     Indication: Adenocarcinoma
     Dosage: 6.4 MG/KG, ONCE EVERY 3 WK
     Route: 041
     Dates: start: 20220905, end: 20220905
  3. LANSOPRAZOLE [Concomitant]
     Active Substance: LANSOPRAZOLE
     Dosage: 30 MG, BID
     Route: 042
     Dates: start: 20220902, end: 20220906
  4. OCTREOTIDE ACETATE [Concomitant]
     Active Substance: OCTREOTIDE ACETATE
     Dosage: 200UG-400UG, QD
     Route: 041
     Dates: start: 20220908

REACTIONS (3)
  - Enterocolitis [Unknown]
  - Febrile neutropenia [Recovered/Resolved]
  - Ileus [Unknown]

NARRATIVE: CASE EVENT DATE: 20220823
